FAERS Safety Report 18266188 (Version 2)
Quarter: 2020Q3

REPORT INFORMATION
  Report Type: Spontaneous
  Country: FR (occurrence: FR)
  Receive Date: 20200915
  Receipt Date: 20200921
  Transmission Date: 20201103
  Serious: Yes (Life-Threatening)
  Sender: FDA-Public Use
  Company Number: FR-EMD SERONO-E2B_90080139

PATIENT
  Age: 87 Year
  Sex: Female
  Weight: 52 kg

DRUGS (18)
  1. METFORMIN [Suspect]
     Active Substance: METFORMIN HYDROCHLORIDE
     Dosage: TREATMENT RESUMED (UNKNOWN) FROM 06 AUG 2020 TO 11 AUG 2020
  2. JANUVIA [Suspect]
     Active Substance: SITAGLIPTIN PHOSPHATE
     Indication: DIABETES MELLITUS
     Route: 048
     Dates: end: 20200729
  3. LERCAN [Suspect]
     Active Substance: LERCANIDIPINE
     Indication: HYPERTENSION
     Route: 048
     Dates: end: 20200729
  4. DIFFU K [Suspect]
     Active Substance: POTASSIUM CHLORIDE
     Indication: PRODUCT USED FOR UNKNOWN INDICATION
     Route: 048
     Dates: end: 20200729
  5. CORDARONE [Suspect]
     Active Substance: AMIODARONE HYDROCHLORIDE
     Indication: ATRIAL FIBRILLATION
     Route: 048
     Dates: end: 20200729
  6. METFORMIN [Suspect]
     Active Substance: METFORMIN HYDROCHLORIDE
     Indication: DIABETES MELLITUS
     Route: 048
     Dates: end: 20200729
  7. XARELTO [Suspect]
     Active Substance: RIVAROXABAN
     Dosage: TREATMENT RESUMED (UNKNOWN) FROM 06 AUG 2020 TO 11 AUG 2020
  8. CIRCADIN [Suspect]
     Active Substance: MELATONIN
     Indication: SLEEP DISORDER
     Route: 048
     Dates: end: 20200729
  9. JANUVIA [Suspect]
     Active Substance: SITAGLIPTIN PHOSPHATE
     Dosage: TREATMENT RESUMED (UNKNOWN) FROM 06 AUG 2020 TO 11 AUG 2020
  10. FOSAVANCE [Suspect]
     Active Substance: ALENDRONATE SODIUM\CHOLECALCIFEROL
     Indication: OSTEOPOROSIS
     Route: 048
     Dates: end: 20200729
  11. ZYMAD [Concomitant]
     Active Substance: CHOLECALCIFEROL
     Indication: PRODUCT USED FOR UNKNOWN INDICATION
  12. XARELTO [Suspect]
     Active Substance: RIVAROXABAN
     Indication: ATRIAL FIBRILLATION
     Route: 048
     Dates: end: 20200729
  13. DIFFU K [Suspect]
     Active Substance: POTASSIUM CHLORIDE
     Dosage: TREATMENT RESUMED (UNKNOWN) FROM 06 AUG 2020 TO 11 AUG 2020
  14. CIRCADIN [Suspect]
     Active Substance: MELATONIN
     Dosage: TREATMENT RESUMED (UNKNOWN) FROM 06 AUG 2020 TO 11 AUG 2020
  15. PRAVASTATINE [Suspect]
     Active Substance: PRAVASTATIN
     Indication: DYSLIPIDAEMIA
     Route: 048
     Dates: end: 20200729
  16. PRAVASTATINE [Suspect]
     Active Substance: PRAVASTATIN
     Dosage: TREATMENT RESUMED (UNKNOWN) FROM 06 AUG 2020 TO 11 AUG 2020
  17. CORDARONE [Suspect]
     Active Substance: AMIODARONE HYDROCHLORIDE
     Dosage: TREATMENT RESUMED (UNKNOWN) FROM 06 AUG 2020 TO 11 AUG 2020
  18. LEVOTHYROX [Concomitant]
     Active Substance: LEVOTHYROXINE
     Indication: PRODUCT USED FOR UNKNOWN INDICATION

REACTIONS (2)
  - Lactic acidosis [Recovered/Resolved]
  - Hyperkalaemia [Recovered/Resolved]

NARRATIVE: CASE EVENT DATE: 20200729
